FAERS Safety Report 23858945 (Version 1)
Quarter: 2024Q2

REPORT INFORMATION
  Report Type: Spontaneous
  Country: US (occurrence: US)
  Receive Date: 20240515
  Receipt Date: 20240515
  Transmission Date: 20240716
  Serious: No
  Sender: FDA-Public Use
  Company Number: US-HALEON-2174876

PATIENT
  Age: 73 Year
  Sex: Female

DRUGS (1)
  1. SENSODYNE SENSITIVITY AND GUM WHITENING [Suspect]
     Active Substance: STANNOUS FLUORIDE
     Indication: Dental cleaning
     Dosage: EXPDATE:202411
     Dates: start: 202405, end: 20240512

REACTIONS (1)
  - Hyperaesthesia teeth [Recovered/Resolved]

NARRATIVE: CASE EVENT DATE: 20240501
